FAERS Safety Report 21424280 (Version 1)
Quarter: 2022Q4

REPORT INFORMATION
  Report Type: Spontaneous
  Country: IT (occurrence: IT)
  Receive Date: 20221007
  Receipt Date: 20221007
  Transmission Date: 20230113
  Serious: Yes (Death, Other)
  Sender: FDA-Public Use
  Company Number: IT-BAYER-2022A135025

PATIENT
  Age: 35 Year
  Sex: Male

DRUGS (5)
  1. SORAFENIB [Suspect]
     Active Substance: SORAFENIB
     Indication: Follicular thyroid cancer
     Dosage: 200 MG, QD
     Dates: start: 20081114
  2. SORAFENIB [Suspect]
     Active Substance: SORAFENIB
     Indication: Poorly differentiated thyroid carcinoma
     Dosage: 400 MG, QD
     Dates: start: 20081122
  3. SORAFENIB [Suspect]
     Active Substance: SORAFENIB
     Indication: Follicular thyroid cancer
     Dosage: DAILY DOSE 600 MG
     Dates: start: 20081205
  4. SORAFENIB [Suspect]
     Active Substance: SORAFENIB
     Indication: Follicular thyroid cancer
     Dosage: 400 MG, QD
     Dates: start: 20090131
  5. SORAFENIB [Suspect]
     Active Substance: SORAFENIB
     Indication: Follicular thyroid cancer
     Dosage: DAILY DOSE 600 MG
     Dates: start: 20090318, end: 20090606

REACTIONS (13)
  - Thyroid cancer [Fatal]
  - Pneumonectomy [None]
  - Lymphadenectomy [None]
  - Metastases to liver [None]
  - Metastases to adrenals [None]
  - Diarrhoea [None]
  - Pruritus [None]
  - Fatigue [None]
  - Weight decreased [None]
  - Palmar-plantar erythrodysaesthesia syndrome [None]
  - Musculoskeletal pain [None]
  - Tachycardia [None]
  - Off label use [None]

NARRATIVE: CASE EVENT DATE: 20081114
